FAERS Safety Report 23360341 (Version 1)
Quarter: 2024Q1

REPORT INFORMATION
  Report Type: Spontaneous
  Country: ES (occurrence: ES)
  Receive Date: 20240103
  Receipt Date: 20240103
  Transmission Date: 20240410
  Serious: Yes (Life-Threatening, Other)
  Sender: FDA-Public Use
  Company Number: None

PATIENT
  Age: 67 Year
  Sex: Female

DRUGS (2)
  1. ASPIRIN\PENTAZOCINE [Suspect]
     Active Substance: ASPIRIN\PENTAZOCINE
     Indication: Arteriosclerosis
     Dosage: 100 MG, QD
     Route: 048
     Dates: start: 20230515
  2. ENOXAPARIN SODIUM [Suspect]
     Active Substance: ENOXAPARIN SODIUM
     Indication: Arteriosclerosis
     Dosage: 40 MG, QD
     Route: 058
     Dates: start: 20231123, end: 20231124

REACTIONS (1)
  - Abdominal wall haematoma [Recovered/Resolved]
